FAERS Safety Report 6058512-3 (Version None)
Quarter: 2009Q1

REPORT INFORMATION
  Report Type: 
  Country: None (occurrence: None)
  Receive Date: 20090130
  Receipt Date: 20090121
  Transmission Date: 20090719
  Serious: Yes (Hospitalization, Other)
  Sender: FDA-Public Use
  Company Number: US-BAYER-200910221BCC

PATIENT
  Age: 52 Year
  Sex: Female

DRUGS (8)
  1. ALEVE [Suspect]
     Indication: INFLUENZA LIKE ILLNESS
  2. REBIF [Suspect]
     Indication: MULTIPLE SCLEROSIS
     Route: 058
     Dates: start: 20071201, end: 20080101
  3. REBIF [Suspect]
     Route: 058
     Dates: start: 20080101
  4. REBIF [Suspect]
     Route: 065
     Dates: start: 20070801, end: 20071201
  5. REBIF [Suspect]
     Route: 065
     Dates: start: 20070622, end: 20070801
  6. CLONIDINE [Concomitant]
     Indication: HYPERTENSION
     Dates: start: 20070101
  7. ANTIHYPERTENSIVES [Concomitant]
     Indication: HYPERTENSION
     Dates: start: 20070101
  8. GLUCOPHAGE [Concomitant]
     Indication: DIABETES MELLITUS
     Dates: start: 20070101

REACTIONS (10)
  - ABDOMINAL PAIN UPPER [None]
  - DYSPEPSIA [None]
  - HEPATIC STEATOSIS [None]
  - HEPATOMEGALY [None]
  - LARGE INTESTINAL ULCER [None]
  - LIVER FUNCTION TEST ABNORMAL [None]
  - MULTIPLE SCLEROSIS [None]
  - OESOPHAGEAL ULCER [None]
  - PYREXIA [None]
  - TREMOR [None]
